FAERS Safety Report 4375437-X (Version None)
Quarter: 2004Q2

REPORT INFORMATION
  Report Type: 
  Country: None (occurrence: None)
  Receive Date: 20040607
  Receipt Date: 20040527
  Transmission Date: 20050107
  Serious: Yes (Other)
  Sender: FDA-Public Use
  Company Number: 2004215678US

PATIENT
  Age: 76 Year
  Sex: Female

DRUGS (3)
  1. DETROL [Suspect]
     Indication: URGE INCONTINENCE
     Dosage: (SEE IMAGE)
     Route: 048
  2. DONEPEZIL HCL [Concomitant]
  3. LEVOTHYROXINE SODIUM [Concomitant]

REACTIONS (4)
  - ABNORMAL BEHAVIOUR [None]
  - COGNITIVE DETERIORATION [None]
  - NOCTURIA [None]
  - SLEEP DISORDER [None]
